FAERS Safety Report 5656123-2 (Version None)
Quarter: 2008Q1

REPORT INFORMATION
  Report Type: 
  Country: None (occurrence: None)
  Receive Date: 20080305
  Receipt Date: 20080222
  Transmission Date: 20080703
  Serious: Yes (Other)
  Sender: FDA-Public Use
  Company Number: 163-20785-08011300

PATIENT
  Age: 63 Year
  Sex: Female

DRUGS (3)
  1. THALOMID [Suspect]
     Indication: MULTIPLE MYELOMA
     Dosage: 150 MG, 3 IN 1 D, ORAL; 100 MG, 1 IN 1 D, ORAL; 200 MG, 1 IN 1 D, ORAL
     Route: 048
     Dates: start: 20040726, end: 20040801
  2. THALOMID [Suspect]
     Indication: MULTIPLE MYELOMA
     Dosage: 150 MG, 3 IN 1 D, ORAL; 100 MG, 1 IN 1 D, ORAL; 200 MG, 1 IN 1 D, ORAL
     Route: 048
     Dates: start: 20070806, end: 20071001
  3. THALOMID [Suspect]
     Indication: MULTIPLE MYELOMA
     Dosage: 150 MG, 3 IN 1 D, ORAL; 100 MG, 1 IN 1 D, ORAL; 200 MG, 1 IN 1 D, ORAL
     Route: 048
     Dates: start: 20071022, end: 20071201

REACTIONS (1)
  - BREAST CANCER FEMALE [None]
